FAERS Safety Report 19700339 (Version 2)
Quarter: 2021Q3

REPORT INFORMATION
  Report Type: Spontaneous
  Country: KR (occurrence: KR)
  Receive Date: 20210814
  Receipt Date: 20210826
  Transmission Date: 20211014
  Serious: Yes (Death, Other)
  Sender: FDA-Public Use
  Company Number: KR-UNITED THERAPEUTICS-UNT-2021-015714

PATIENT
  Sex: Female

DRUGS (2)
  1. REMODULIN [Suspect]
     Active Substance: TREPROSTINIL
     Dosage: 0.034 ?G/KG, CONTINUING
     Route: 058
     Dates: end: 20210805
  2. REMODULIN [Suspect]
     Active Substance: TREPROSTINIL
     Indication: PULMONARY ARTERIAL HYPERTENSION
     Dosage: UNK, CONTINUING
     Route: 058
     Dates: start: 20161020

REACTIONS (1)
  - Pulmonary arterial hypertension [Fatal]
